FAERS Safety Report 26168999 (Version 1)
Quarter: 2025Q4

REPORT INFORMATION
  Report Type: Spontaneous
  Country: EU (occurrence: EU)
  Receive Date: 20251217
  Receipt Date: 20251217
  Transmission Date: 20260118
  Serious: Yes (Other)
  Sender: RANBAXY
  Company Number: None

PATIENT
  Age: 86 Year
  Sex: Male
  Weight: 80 kg

DRUGS (1)
  1. CLOPIDOGREL [Suspect]
     Active Substance: CLOPIDOGREL BISULFATE
     Indication: Left atrial appendage closure implant
     Dosage: 75MG
     Route: 048
     Dates: start: 20250605

REACTIONS (2)
  - Acquired haemophilia [Not Recovered/Not Resolved]
  - Blood loss anaemia [Not Recovered/Not Resolved]

NARRATIVE: CASE EVENT DATE: 20250610
